FAERS Safety Report 7117269-5 (Version None)
Quarter: 2010Q4

REPORT INFORMATION
  Report Type: 
  Country: None (occurrence: None)
  Receive Date: 20101122
  Receipt Date: 20101103
  Transmission Date: 20110411
  Serious: Yes (Other)
  Sender: FDA-Public Use
  Company Number: PHHY2010BE70180

PATIENT

DRUGS (1)
  1. RASILEZ [Suspect]
     Dosage: UNK

REACTIONS (1)
  - RENAL FAILURE [None]
